FAERS Safety Report 4589393-2 (Version None)
Quarter: 2005Q1

REPORT INFORMATION
  Report Type: 
  Country: None (occurrence: None)
  Receive Date: 20050216
  Receipt Date: 20050128
  Transmission Date: 20050727
  Serious: Yes (Hospitalization, Other)
  Sender: FDA-Public Use
  Company Number: US_010668260

PATIENT
  Age: 39 Year
  Sex: Male
  Weight: 144 kg

DRUGS (18)
  1. ZYPREXA [Suspect]
     Indication: SCHIZOAFFECTIVE DISORDER
     Dosage: 20 MG/1 DAY
     Dates: start: 19970101, end: 20040101
  2. ABILIFY [Concomitant]
  3. SEROQUEL [Concomitant]
  4. RISPERDAL [Concomitant]
  5. GEODON [Concomitant]
  6. THORAZINE [Concomitant]
  7. HALDOL (HALOPERIDOL DECANOATE) [Concomitant]
  8. TRILAFON (PERPHENAZINE ENANTATE) [Concomitant]
  9. NAVANE [Concomitant]
  10. WELLBUTRIN [Concomitant]
  11. REMERON (MIRTAZAPINE ORIFARM) [Concomitant]
  12. ZOLOFT [Concomitant]
  13. EFFEXOR [Concomitant]
  14. GLUCOTROL [Concomitant]
  15. METAGLIP [Concomitant]
  16. GLUCOPHAGE [Concomitant]
  17. PREVACID [Concomitant]
  18. BUSPAR [Concomitant]

REACTIONS (52)
  - ANAL DISCOMFORT [None]
  - ASTHENIA [None]
  - BALANITIS [None]
  - BLOOD CHLORIDE DECREASED [None]
  - BLOOD CHOLESTEROL INCREASED [None]
  - BLOOD POTASSIUM INCREASED [None]
  - BLOOD SODIUM DECREASED [None]
  - BLOOD TRIGLYCERIDES INCREASED [None]
  - BRONCHITIS [None]
  - BURNING SENSATION [None]
  - CONDITION AGGRAVATED [None]
  - CONJUNCTIVAL HYPERAEMIA [None]
  - CULTURE THROAT POSITIVE [None]
  - DIABETES MELLITUS [None]
  - DIABETES MELLITUS INADEQUATE CONTROL [None]
  - DIABETIC NEUROPATHY [None]
  - DIARRHOEA [None]
  - DIZZINESS [None]
  - DYSPHORIA [None]
  - ELECTROCARDIOGRAM ST SEGMENT ELEVATION [None]
  - ERECTILE DYSFUNCTION [None]
  - ERYTHEMA [None]
  - FATIGUE [None]
  - GASTRITIS [None]
  - GASTROOESOPHAGEAL REFLUX DISEASE [None]
  - HAEMATEMESIS [None]
  - HAEMATOCHEZIA [None]
  - HEADACHE [None]
  - HEPATIC STEATOSIS [None]
  - HEPATITIS C [None]
  - HIGH DENSITY LIPOPROTEIN DECREASED [None]
  - HYPERGLYCAEMIA [None]
  - HYPOGONADISM [None]
  - LUNG INFILTRATION [None]
  - MYOCARDIAL INFARCTION [None]
  - NASAL CONGESTION [None]
  - NEPHROLITHIASIS [None]
  - OBESITY [None]
  - OPIATES POSITIVE [None]
  - OTITIS MEDIA [None]
  - PCO2 DECREASED [None]
  - PRESBYOPIA [None]
  - REFLUX OESOPHAGITIS [None]
  - RETCHING [None]
  - SCHIZOAFFECTIVE DISORDER [None]
  - SLEEP APNOEA SYNDROME [None]
  - SNEEZING [None]
  - SUICIDAL IDEATION [None]
  - THROAT IRRITATION [None]
  - VISION BLURRED [None]
  - VOMITING [None]
  - WEIGHT INCREASED [None]
